FAERS Safety Report 19622355 (Version 1)
Quarter: 2021Q3

REPORT INFORMATION
  Report Type: Report from Study
  Country: DE (occurrence: DE)
  Receive Date: 20210728
  Receipt Date: 20210728
  Transmission Date: 20211014
  Serious: Yes (Other)
  Sender: FDA-Public Use
  Company Number: DE-SA-2021SA244558

PATIENT
  Age: 17 Year
  Sex: Female

DRUGS (10)
  1. HEPARIN [Concomitant]
     Active Substance: HEPARIN SODIUM
     Dosage: 1 DF, QD
     Route: 042
  2. LORATADINE. [Concomitant]
     Active Substance: LORATADINE
  3. HYDROCORTISONE. [Concomitant]
     Active Substance: HYDROCORTISONE
     Dosage: 1 DF, 1X
     Route: 042
  4. PLACEBO [Suspect]
     Active Substance: UNSPECIFIED INGREDIENT
     Indication: TYPE 1 DIABETES MELLITUS
     Dosage: UNK
     Route: 042
     Dates: start: 20210511, end: 20210512
  5. ANTI?THYMOCYTE GLOBULIN (RABBIT) NOS [Suspect]
     Active Substance: LAPINE T-LYMPHOCYTE IMMUNE GLOBULIN
     Indication: TYPE 1 DIABETES MELLITUS
     Dosage: UNK
     Route: 042
     Dates: start: 20210511, end: 20210512
  6. BLINDED NO STUDY DRUG GIVEN [Suspect]
     Active Substance: INVESTIGATIONAL PRODUCT
     Indication: TYPE 1 DIABETES MELLITUS
     Dosage: UNK
     Route: 042
     Dates: start: 20210511, end: 20210512
  7. PREDNISOLONE. [Concomitant]
     Active Substance: PREDNISOLONE
     Dosage: 95 MG
     Route: 042
  8. PARACETAMOL [Concomitant]
     Active Substance: ACETAMINOPHEN
     Dosage: 1000 MG, QD
     Route: 048
     Dates: start: 20210511, end: 20210512
  9. PARACETAMOL [Concomitant]
     Active Substance: ACETAMINOPHEN
     Dosage: UNK
     Dates: start: 20210522, end: 20210522
  10. ANTI?THYMOCYTE GLOBULIN (RABBIT) NOS [Suspect]
     Active Substance: LAPINE T-LYMPHOCYTE IMMUNE GLOBULIN
     Indication: TYPE 1 DIABETES MELLITUS
     Dosage: UNK
     Route: 042
     Dates: start: 20210511, end: 20210512

REACTIONS (7)
  - Procedural complication [Recovered/Resolved]
  - Heart rate increased [Recovered/Resolved]
  - Serum sickness [Recovered/Resolved]
  - Rash [Recovered/Resolved]
  - Headache [Recovered/Resolved]
  - Pyrexia [Recovered/Resolved]
  - Overdose [Unknown]

NARRATIVE: CASE EVENT DATE: 20210511
